FAERS Safety Report 17391066 (Version 4)
Quarter: 2020Q2

REPORT INFORMATION
  Report Type: Spontaneous
  Country: JP (occurrence: JP)
  Receive Date: 20200207
  Receipt Date: 20200619
  Transmission Date: 20200713
  Serious: Yes (Other)
  Sender: FDA-Public Use
  Company Number: JP-PFIZER INC-2019512856

PATIENT
  Age: 64 Year
  Sex: Male
  Weight: 51 kg

DRUGS (9)
  1. XALKORI [Suspect]
     Active Substance: CRIZOTINIB
     Indication: LUNG NEOPLASM MALIGNANT
     Dosage: 250 MG, 2X/DAY
     Route: 048
     Dates: start: 20191024, end: 20191031
  2. REBAMIPIDE [Concomitant]
     Active Substance: REBAMIPIDE
     Indication: PAIN
     Dosage: 100 MG, 3X/DAY
     Route: 048
     Dates: start: 20191023, end: 20191031
  3. XALKORI [Suspect]
     Active Substance: CRIZOTINIB
     Dosage: 250 MG, 2X/DAY
     Route: 048
     Dates: start: 20191104, end: 20191113
  4. LOXOPROFEN EMEC [Suspect]
     Active Substance: LOXOPROFEN
     Indication: PAIN
     Dosage: 60 MG, 3X/DAY
     Route: 048
     Dates: start: 20191023, end: 20191031
  5. DEXART [Concomitant]
     Active Substance: DEXAMETHASONE SODIUM PHOSPHATE
     Indication: NAUSEA
     Dosage: 1.65 MG (ONCE OR TWICE DAILY)
     Route: 042
     Dates: start: 20191031, end: 20191109
  6. GASTER [Concomitant]
     Active Substance: FAMOTIDINE
     Indication: PROPHYLAXIS
     Dosage: 20 MG, 1X/DAY
     Route: 042
     Dates: start: 20191031, end: 20191109
  7. TRAMAL [Suspect]
     Active Substance: TRAMADOL
     Indication: PAIN
     Dosage: 25 MG, 4X/DAY
     Route: 048
     Dates: start: 20191024, end: 20191031
  8. ANPEC [MORPHINE HYDROCHLORIDE] [Concomitant]
     Indication: PAIN
     Dosage: 10 MG, 2X/DAY
     Dates: start: 20191103, end: 20191213
  9. METOCLOPRAMIDE HYDROCHLORIDE. [Concomitant]
     Active Substance: METOCLOPRAMIDE HYDROCHLORIDE
     Indication: NAUSEA
     Dosage: 10 MG (ONCE OR TWICE DAILY)
     Route: 042
     Dates: start: 20191030, end: 20191109

REACTIONS (8)
  - Nausea [Recovered/Resolved]
  - Gamma-glutamyltransferase increased [Recovered/Resolved]
  - Alanine aminotransferase increased [Recovered/Resolved]
  - Gastric ulcer [Unknown]
  - Vomiting [Recovering/Resolving]
  - Blood alkaline phosphatase increased [Recovered/Resolved]
  - Aspartate aminotransferase increased [Recovered/Resolved]
  - Decreased appetite [Recovering/Resolving]

NARRATIVE: CASE EVENT DATE: 20191025
